FAERS Safety Report 7000813-6 (Version None)
Quarter: 2010Q3

REPORT INFORMATION
  Report Type: 
  Country: None (occurrence: None)
  Receive Date: 20100920
  Receipt Date: 20091012
  Transmission Date: 20110219
  Serious: No
  Sender: FDA-Public Use
  Company Number: US-ASTRAZENECA-2009SE19633

PATIENT
  Age: 65 Year
  Sex: Female
  Weight: 86.2 kg

DRUGS (4)
  1. SEROQUEL [Suspect]
     Route: 048
     Dates: start: 20090309
  2. INSULIN [Concomitant]
  3. GLUCOTROL [Concomitant]
  4. GEMFIBROZIL [Concomitant]

REACTIONS (2)
  - HYPERHIDROSIS [None]
  - TACHYCARDIA [None]
